FAERS Safety Report 4281065-7 (Version None)
Quarter: 2004Q1

REPORT INFORMATION
  Report Type: 
  Country: None (occurrence: None)
  Receive Date: 20040123
  Receipt Date: 20030612
  Transmission Date: 20041129
  Serious: Yes (Other)
  Sender: FDA-Public Use
  Company Number: HQWYE601513JUN03

PATIENT
  Age: 71 Year
  Sex: Male

DRUGS (6)
  1. CORDARONE [Suspect]
     Dosage: 200 MG TABLET, DAILY DOSE, ORAL
     Route: 048
     Dates: end: 20030101
  2. COUMADIN [Concomitant]
  3. AMOXICILLIN [Concomitant]
  4. FOLIC ACID [Concomitant]
  5. VALIUM [Concomitant]
  6. SYNTHROID [Concomitant]

REACTIONS (3)
  - BLINDNESS UNILATERAL [None]
  - OPTIC NEUROPATHY [None]
  - VISION BLURRED [None]
